FAERS Safety Report 8399183-0 (Version None)
Quarter: 2012Q2

REPORT INFORMATION
  Report Type: 
  Country: None (occurrence: None)
  Receive Date: 20120531
  Receipt Date: 20120502
  Transmission Date: 20120825
  Serious: Yes (Hospitalization)
  Sender: FDA-Public Use
  Company Number: US-JNJFOC-20120515146

PATIENT
  Sex: Male
  Weight: 82.56 kg

DRUGS (2)
  1. REMICADE [Suspect]
     Indication: CROHN'S DISEASE
     Dosage: 2 TOTAL INFUSIONS
     Route: 042
     Dates: start: 20100128
  2. REMICADE [Suspect]
     Route: 042
     Dates: start: 20100115

REACTIONS (3)
  - DIARRHOEA [None]
  - PULMONARY EMBOLISM [None]
  - ACUTE RESPIRATORY DISTRESS SYNDROME [None]
